FAERS Safety Report 5839373-1 (Version None)
Quarter: 2008Q3

REPORT INFORMATION
  Report Type: 
  Country: None (occurrence: None)
  Receive Date: 20080806
  Receipt Date: 20080804
  Transmission Date: 20090109
  Serious: Yes (Life-Threatening, Hospitalization)
  Sender: FDA-Public Use
  Company Number: 2008SP015755

PATIENT
  Age: 78 Year
  Sex: Male
  Weight: 65 kg

DRUGS (21)
  1. TEMODAL [Suspect]
     Indication: LYMPHOMA
     Dosage: 255 MG; QD; PO
     Route: 048
     Dates: start: 20080730, end: 20080731
  2. METHOTREXATE [Suspect]
     Indication: LYMPHOMA
     Dosage: 5.95 GM;	 IV
     Route: 042
     Dates: start: 20080730, end: 20080731
  3. LOVENOX [Concomitant]
  4. NEUPOGEN [Concomitant]
  5. ARANESP [Concomitant]
  6. SOLU-MEDROL [Concomitant]
  7. INIPOMP [Concomitant]
  8. MONOTILDIEM [Concomitant]
  9. COVERSYL [Concomitant]
  10. DEROXAT [Concomitant]
  11. RISPERDAL [Concomitant]
  12. OXAZEPAM [Concomitant]
  13. TAVANIC [Concomitant]
  14. FOLIC ACID [Concomitant]
  15. LAMALINE [Concomitant]
  16. ATARAX [Concomitant]
  17. XATRAL [Concomitant]
  18. CACIT D3 [Concomitant]
  19. PEVARYL [Concomitant]
  20. FORLAX [Concomitant]
  21. CORTANCYL [Concomitant]

REACTIONS (3)
  - HYPOXIA [None]
  - NEUTROPENIA [None]
  - SEPTIC SHOCK [None]
